FAERS Safety Report 6681661-3 (Version None)
Quarter: 2010Q2

REPORT INFORMATION
  Report Type: 
  Country: None (occurrence: None)
  Receive Date: 20100413
  Receipt Date: 20100413
  Transmission Date: 20101027
  Serious: Yes (Life-Threatening, Other)
  Sender: FDA-Public Use
  Company Number: None

PATIENT
  Sex: Female
  Weight: 102.9665 kg

DRUGS (1)
  1. EFFEXOR XR [Suspect]
     Indication: ANXIETY DISORDER
     Dosage: 300 MG DAY PO
     Route: 048
     Dates: start: 20061015, end: 20100406

REACTIONS (8)
  - DEPENDENCE [None]
  - DRUG WITHDRAWAL SYNDROME [None]
  - GALLBLADDER DISORDER [None]
  - HYPERTENSION [None]
  - LIVER INJURY [None]
  - NERVOUS SYSTEM DISORDER [None]
  - TACHYCARDIA [None]
  - WEIGHT INCREASED [None]
